FAERS Safety Report 9766370 (Version 1)
Quarter: 2013Q4

REPORT INFORMATION
  Report Type: Spontaneous
  Country: US (occurrence: US)
  Receive Date: 20131217
  Receipt Date: 20131217
  Transmission Date: 20140711
  Serious: No
  Sender: FDA-Public Use
  Company Number: US-GLAXOSMITHKLINE-A1026770A

PATIENT
  Age: 53 Year
  Sex: Female

DRUGS (1)
  1. VOTRIENT [Suspect]
     Indication: BREAST CANCER IN SITU
     Dosage: 800MG PER DAY
     Route: 065

REACTIONS (1)
  - Hypertension [Unknown]
